FAERS Safety Report 10112186 (Version 2)
Quarter: 2015Q1

REPORT INFORMATION
  Report Type: Other
  Country: US (occurrence: US)
  Receive Date: 20140425
  Receipt Date: 20150116
  Transmission Date: 20150720
  Serious: Yes (Hospitalization, Other)
  Sender: FDA-Public Use
  Company Number: US-GSKPPD-2014GSK011464

PATIENT
  Age: 63 Year
  Sex: Female

DRUGS (8)
  1. CADUET [Concomitant]
     Active Substance: AMLODIPINE BESYLATE\ATORVASTATIN CALCIUM
     Dosage: 5 MG/ 10 MG
  2. ASPIRIN. [Concomitant]
     Active Substance: ASPIRIN
  3. HYDROCHLOROTHIAZIDE. [Concomitant]
     Active Substance: HYDROCHLOROTHIAZIDE
     Dosage: 12.5 MG
  4. PLAVIX [Concomitant]
     Active Substance: CLOPIDOGREL BISULFATE
  5. AVANDAMET [Suspect]
     Active Substance: METFORMIN HYDROCHLORIDE\ROSIGLITAZONE MALEATE
     Indication: DIABETES MELLITUS
     Dosage: 8 MG / 2000 MG?DATES OF AVANDAMET USE COULD NOT BE CONFIRMED IN RECORDS REVIEWED.
     Route: 048
  6. ACCUPRIL [Concomitant]
     Active Substance: QUINAPRIL HYDROCHLORIDE
  7. ATENOLOL. [Concomitant]
     Active Substance: ATENOLOL
  8. AVANDIA [Suspect]
     Active Substance: ROSIGLITAZONE MALEATE
     Indication: DIABETES MELLITUS
     Dosage: DATES OF AVANDIA USE COULD NOT BE CONFIRMED IN RECORDS REVIEWED.
     Route: 048

REACTIONS (2)
  - Coronary artery disease [Recovered/Resolved]
  - Coronary artery disease [Recovered/Resolved]

NARRATIVE: CASE EVENT DATE: 20041009
